FAERS Safety Report 6558341-8 (Version None)
Quarter: 2010Q1

REPORT INFORMATION
  Report Type: 
  Country: None (occurrence: None)
  Receive Date: 20100129
  Receipt Date: 20100119
  Transmission Date: 20100710
  Serious: Yes (Hospitalization, Other)
  Sender: FDA-Public Use
  Company Number: FR-JNJFOC-20100108060

PATIENT
  Age: 88 Year
  Sex: Female

DRUGS (3)
  1. RISPERDAL [Suspect]
     Indication: ANXIETY
     Route: 048
  2. LEVOTHYROXINE SODIUM [Concomitant]
     Route: 065
  3. PREVISCAN (FLUINDIONE) [Concomitant]
     Route: 065

REACTIONS (8)
  - CONFUSIONAL STATE [None]
  - GAIT DISTURBANCE [None]
  - GENERAL PHYSICAL HEALTH DETERIORATION [None]
  - MEMORY IMPAIRMENT [None]
  - MINOR COGNITIVE MOTOR DISORDER [None]
  - OFF LABEL USE [None]
  - PSYCHOMOTOR RETARDATION [None]
  - URINARY INCONTINENCE [None]
